FAERS Safety Report 23541639 (Version 4)
Quarter: 2025Q2

REPORT INFORMATION
  Report Type: Report from Study
  Country: US (occurrence: US)
  Receive Date: 20240219
  Receipt Date: 20250531
  Transmission Date: 20250717
  Serious: Yes (Other)
  Sender: ABBVIE
  Company Number: US-ABBVIE-5538066

PATIENT
  Age: 64 Year
  Sex: Female
  Weight: 76 kg

DRUGS (19)
  1. HUMIRA [Suspect]
     Active Substance: ADALIMUMAB
     Indication: Colitis ulcerative
     Dosage: FORM STRENGTH WAS 80 MILLIGRAM
     Route: 058
     Dates: start: 20220622, end: 20220623
  2. HUMIRA [Suspect]
     Active Substance: ADALIMUMAB
     Route: 058
     Dates: start: 20220706, end: 20220706
  3. HUMIRA [Suspect]
     Active Substance: ADALIMUMAB
     Route: 058
     Dates: start: 20220622, end: 20220923
  4. HUMIRA [Suspect]
     Active Substance: ADALIMUMAB
     Route: 058
     Dates: start: 20220720, end: 20220831
  5. Pfizer Covid19- vaccine [Concomitant]
     Indication: COVID-19 immunisation
     Route: 030
     Dates: start: 20210514, end: 20210514
  6. Pfizer Covid19- vaccine [Concomitant]
     Indication: COVID-19 immunisation
     Route: 030
     Dates: start: 20210604, end: 20210604
  7. Pfizer Covid19- vaccine [Concomitant]
     Indication: COVID-19 immunisation
     Route: 030
     Dates: start: 20211231, end: 20211231
  8. ESTRADIOL [Concomitant]
     Active Substance: ESTRADIOL
     Indication: Menopausal symptoms
     Route: 061
  9. TRAMADOL [Suspect]
     Active Substance: TRAMADOL
     Indication: Procedural pain
     Route: 048
     Dates: start: 20231030, end: 202311
  10. ACYCLOVIR [Concomitant]
     Active Substance: ACYCLOVIR
     Indication: Herpes virus infection
     Route: 048
  11. ACYCLOVIR [Concomitant]
     Active Substance: ACYCLOVIR
     Indication: Herpes virus infection
     Dosage: FORM STRENGTH WAS 400 MG
  12. XELJANZ [Suspect]
     Active Substance: TOFACITINIB CITRATE
     Indication: Colitis ulcerative
     Dosage: FORM STRENGTH 10 MILLIGRAM
     Route: 048
     Dates: start: 20221004, end: 20221030
  13. XELJANZ [Suspect]
     Active Substance: TOFACITINIB CITRATE
     Indication: Colitis ulcerative
     Dosage: FORM STRENGTH 5 MILLIGRAM
     Route: 048
     Dates: start: 20221031, end: 20221230
  14. XELJANZ [Suspect]
     Active Substance: TOFACITINIB CITRATE
     Indication: Colitis ulcerative
     Dosage: FORM STRENGTH 5 MILLIGRAM
     Route: 048
     Dates: start: 202302, end: 20230508
  15. XELJANZ [Suspect]
     Active Substance: TOFACITINIB CITRATE
     Indication: Colitis ulcerative
     Dosage: FORM STRENGTH 5 MILLIGRAM
     Route: 048
     Dates: start: 20221231, end: 202302
  16. STELARA [Suspect]
     Active Substance: USTEKINUMAB
     Indication: Colitis ulcerative
     Route: 058
     Dates: start: 20230711
  17. ESTRACE [Concomitant]
     Active Substance: ESTRADIOL
     Indication: Product used for unknown indication
  18. VITAMIN C [Concomitant]
     Active Substance: ASCORBIC ACID
     Indication: Product used for unknown indication
  19. DIETARY SUPPLEMENT [Concomitant]
     Active Substance: DIETARY SUPPLEMENT
     Indication: Product used for unknown indication

REACTIONS (45)
  - Cholelithiasis [Recovered/Resolved]
  - Drug ineffective [Not Recovered/Not Resolved]
  - Alopecia [Recovered/Resolved]
  - Procedural pain [Recovered/Resolved]
  - Nausea [Recovered/Resolved]
  - Blood creatine phosphokinase increased [Recovering/Resolving]
  - Dyspepsia [Recovering/Resolving]
  - Colitis ulcerative [Recovering/Resolving]
  - Gingival bleeding [Recovered/Resolved]
  - Frequent bowel movements [Recovered/Resolved]
  - Petechiae [Unknown]
  - Joint swelling [Recovering/Resolving]
  - Alopecia [Not Recovered/Not Resolved]
  - Blood cholesterol increased [Recovered/Resolved]
  - Injection site pain [Recovered/Resolved]
  - Gallbladder enlargement [Recovered/Resolved]
  - Pruritus [Not Recovered/Not Resolved]
  - Rectal haemorrhage [Recovered/Resolved]
  - Mucous stools [Recovered/Resolved]
  - Mass [Not Recovered/Not Resolved]
  - Constipation [Recovered/Resolved]
  - Frequent bowel movements [Recovering/Resolving]
  - Pain [Recovered/Resolved]
  - Vomiting [Recovered/Resolved]
  - Anal haemorrhage [Not Recovered/Not Resolved]
  - Constipation [Recovered/Resolved]
  - Skin fragility [Unknown]
  - Pruritus [Recovering/Resolving]
  - Rash [Recovering/Resolving]
  - Pallor [Recovered/Resolved]
  - Mass [Recovered/Resolved]
  - Injection site mass [Recovered/Resolved]
  - Headache [Recovered/Resolved]
  - Erythema [Recovering/Resolving]
  - Neurogenic bowel [Recovered/Resolved]
  - Acne [Unknown]
  - Alopecia [Unknown]
  - Injection site pain [Unknown]
  - Pain [Unknown]
  - Skin haemorrhage [Unknown]
  - Peripheral swelling [Recovering/Resolving]
  - Skin laceration [Unknown]
  - Contusion [Unknown]
  - Back pain [Unknown]
  - Pain in extremity [Unknown]

NARRATIVE: CASE EVENT DATE: 20220101
